FAERS Safety Report 25706009 (Version 1)
Quarter: 2025Q3

REPORT INFORMATION
  Report Type: Spontaneous
  Country: US (occurrence: US)
  Receive Date: 20250820
  Receipt Date: 20250820
  Transmission Date: 20251021
  Serious: No
  Sender: NEUROCRINE BIOSCIENCES
  Company Number: US-NEUROCRINE BIOSCIENCES INC.-2025NBI10452

PATIENT
  Sex: Female

DRUGS (2)
  1. INGREZZA [Suspect]
     Active Substance: VALBENAZINE DITOSYLATE
     Indication: Tardive dyskinesia
     Route: 065
     Dates: start: 20250728
  2. COGENTIN [Concomitant]
     Active Substance: BENZTROPINE MESYLATE

REACTIONS (5)
  - Bradyphrenia [Unknown]
  - Fatigue [Unknown]
  - Weight increased [Unknown]
  - Nausea [Unknown]
  - Muscle spasms [Unknown]
